FAERS Safety Report 14166627 (Version 1)
Quarter: 2017Q4

REPORT INFORMATION
  Report Type: Spontaneous
  Country: US (occurrence: US)
  Receive Date: 20171107
  Receipt Date: 20171107
  Transmission Date: 20180321
  Serious: No
  Sender: FDA-Public Use
  Company Number: US-PFIZER INC-2017462663

PATIENT
  Sex: Male

DRUGS (1)
  1. CHAPSTICK SUN DEFENSE [Suspect]
     Active Substance: OCTINOXATE\OCTISALATE\OCTOCRYLENE\OXYBENZONE\PETROLATUM
     Dosage: UNK

REACTIONS (1)
  - Reaction to excipient [Unknown]
